FAERS Safety Report 16804274 (Version 8)
Quarter: 2022Q1

REPORT INFORMATION
  Report Type: Spontaneous
  Country: JP (occurrence: JP)
  Receive Date: 20190913
  Receipt Date: 20220302
  Transmission Date: 20220424
  Serious: Yes (Life-Threatening, Hospitalization, Disabling)
  Sender: FDA-Public Use
  Company Number: JP-ASTRAZENECA-201951828_010210_P_1

PATIENT

DRUGS (14)
  1. ZOLADEX [Suspect]
     Active Substance: GOSERELIN ACETATE
     Indication: Prostate cancer
     Dosage: 3.6 MILLIGRAM, EVERY 4 WEEKS
     Route: 058
     Dates: start: 20190520, end: 20190817
  2. ZOLADEX [Suspect]
     Active Substance: GOSERELIN ACETATE
     Indication: Prostate cancer
     Dosage: UNK
     Route: 065
  3. CASODEX [Suspect]
     Active Substance: BICALUTAMIDE
     Indication: Prostate cancer
     Dosage: 80 MILLIGRAM, QD
     Route: 048
     Dates: start: 20190617, end: 20190817
  4. CASODEX [Suspect]
     Active Substance: BICALUTAMIDE
     Dosage: 80 MILLIGRAM, QD
     Route: 048
     Dates: start: 20190902
  5. ASPIRIN [Suspect]
     Active Substance: ASPIRIN
     Indication: Thrombosis prophylaxis
     Dosage: 100 MILLIGRAM, QD
     Route: 048
     Dates: start: 20180801, end: 20190817
  6. CITRIC ACID MONOHYDRATE\DEXTROSE\SODIUM CITRATE\SODIUM PHOSPHATE, MONO [Concomitant]
     Active Substance: CITRIC ACID MONOHYDRATE\DEXTROSE\SODIUM CITRATE\SODIUM PHOSPHATE, MONOBASIC
     Indication: Cerebral infarction
     Dosage: UNK
     Route: 065
  7. AMLODIPINE [Concomitant]
     Active Substance: AMLODIPINE BESYLATE
     Indication: Hypertension
     Dosage: 5 MILLIGRAM, QD
     Route: 048
     Dates: start: 20180801
  8. BETAHISTINE MESILATE [Concomitant]
     Active Substance: BETAHISTINE MESILATE
     Indication: Dizziness
     Dosage: 6 MILLIGRAM, TID
     Route: 048
     Dates: start: 20180801
  9. SILODOSIN [Concomitant]
     Active Substance: SILODOSIN
     Indication: Dysuria
     Dosage: 4 MILLIGRAM, BID
     Route: 048
     Dates: start: 20180801, end: 20190817
  10. DUTASTERIDE [Concomitant]
     Active Substance: DUTASTERIDE
     Indication: Dysuria
     Dosage: 0.5 MILLIGRAM, QD
     Route: 048
     Dates: start: 20180801, end: 20190817
  11. LANSOPRAZOLE [Concomitant]
     Active Substance: LANSOPRAZOLE
     Indication: Gastrooesophageal reflux disease
     Dosage: 15 MILLIGRAM, QD
     Route: 048
     Dates: start: 20180801
  12. LIVALO [Concomitant]
     Active Substance: PITAVASTATIN CALCIUM
     Indication: Thrombosis prophylaxis
     Dosage: 1 MILLIGRAM, QD
     Route: 048
     Dates: start: 20180801
  13. CILOSTAZOL [Concomitant]
     Active Substance: CILOSTAZOL
     Indication: Thrombosis prophylaxis
     Dosage: 100 MILLIGRAM, BID
     Route: 048
     Dates: start: 20180926, end: 20190817
  14. MIRABEGRON [Concomitant]
     Active Substance: MIRABEGRON
     Indication: Product used for unknown indication
     Dosage: 50 MILLIGRAM, QD
     Route: 048
     Dates: start: 20190617, end: 20190817

REACTIONS (5)
  - Abdominal wall haematoma [Recovering/Resolving]
  - Arterial injury [Unknown]
  - Chronic myeloid leukaemia [Recovering/Resolving]
  - Monoplegia [Not Recovered/Not Resolved]
  - Cerebral infarction [Not Recovered/Not Resolved]

NARRATIVE: CASE EVENT DATE: 20190805
